FAERS Safety Report 9627504 (Version 2)
Quarter: 2014Q2

REPORT INFORMATION
  Report Type: Spontaneous
  Country: DK (occurrence: IE)
  Receive Date: 20131016
  Receipt Date: 20140509
  Transmission Date: 20141212
  Serious: Yes (Other)
  Sender: FDA-Public Use
  Company Number: IE-FRI-1000049997

PATIENT
  Age: 50 Year
  Sex: Male

DRUGS (9)
  1. LEXAPRO [Suspect]
     Indication: DEPRESSION
     Dosage: 20 MG
     Route: 048
  2. LEXAPRO [Suspect]
     Indication: GENERALISED ANXIETY DISORDER
     Dosage: 10 MG
     Route: 048
  3. LEXAPRO [Suspect]
     Dosage: 5 MG
     Route: 048
  4. LEXAPRO [Suspect]
     Route: 048
  5. LITHIUM [Concomitant]
     Indication: DEPRESSION
  6. SEROQUEL XR [Concomitant]
  7. CRESTOR [Concomitant]
  8. TRITACE [Concomitant]
  9. ASPIRIN [Concomitant]

REACTIONS (1)
  - Drug withdrawal syndrome [Recovered/Resolved]
